FAERS Safety Report 8465086-6 (Version None)
Quarter: 2012Q2

REPORT INFORMATION
  Report Type: 
  Country: None (occurrence: None)
  Receive Date: 20120626
  Receipt Date: 20120620
  Transmission Date: 20120825
  Serious: Yes (Other)
  Sender: FDA-Public Use
  Company Number: US-ABBOTT-09P-163-0604805-00

PATIENT
  Age: 6 Day
  Sex: Female

DRUGS (4)
  1. LOPINAVIR/RITONAVIR [Suspect]
     Indication: MATERNAL EXPOSURE TIMING UNSPECIFIED
     Route: 064
  2. NELFINAVIR MESYLATE [Suspect]
     Indication: MATERNAL EXPOSURE TIMING UNSPECIFIED
  3. ZIDOVUDINE [Suspect]
     Indication: MATERNAL EXPOSURE TIMING UNSPECIFIED
     Route: 048
  4. LOPINAVIR AND RITONAVIR [Suspect]
     Indication: PROPHYLAXIS AGAINST HIV INFECTION
     Dosage: 300/75 MG/M**2/DOSE EVERY 12 HOURS
     Route: 048

REACTIONS (11)
  - PULMONARY HAEMORRHAGE [None]
  - ATRIOVENTRICULAR BLOCK COMPLETE [None]
  - TOXICITY TO VARIOUS AGENTS [None]
  - BUNDLE BRANCH BLOCK RIGHT [None]
  - ATRIOVENTRICULAR DISSOCIATION [None]
  - FOETAL EXPOSURE DURING PREGNANCY [None]
  - BUNDLE BRANCH BLOCK LEFT [None]
  - NODAL RHYTHM [None]
  - RESPIRATORY FAILURE [None]
  - RENAL FAILURE ACUTE [None]
  - CONGESTIVE CARDIOMYOPATHY [None]
